FAERS Safety Report 7123035-7 (Version None)
Quarter: 2010Q4

REPORT INFORMATION
  Report Type: 
  Country: None (occurrence: None)
  Receive Date: 20101125
  Receipt Date: 20101103
  Transmission Date: 20110411
  Serious: Yes (Hospitalization)
  Sender: FDA-Public Use
  Company Number: DE-AMGEN-DEUCT2010003210

PATIENT

DRUGS (13)
  1. ETANERCEPT [Suspect]
     Indication: RHEUMATOID ARTHRITIS
     Dosage: 50 MG PER WEEK
     Route: 058
     Dates: start: 20100629, end: 20101001
  2. PREDNISOLONE [Suspect]
     Indication: RHEUMATOID ARTHRITIS
     Route: 048
     Dates: start: 20090501, end: 20100701
  3. PREDNISOLONE [Suspect]
     Route: 048
     Dates: start: 20100601, end: 20100901
  4. PREDNISONE [Concomitant]
     Indication: RHEUMATOID ARTHRITIS
     Route: 048
     Dates: start: 20101006, end: 20101008
  5. ARCOXIA [Concomitant]
     Route: 048
     Dates: start: 20100601
  6. PANTOPRAZOLE SODIUM [Concomitant]
     Route: 048
     Dates: start: 20100601
  7. CALCIMAGON [Concomitant]
     Route: 048
     Dates: start: 20100601
  8. NOVALGIN [Concomitant]
     Dosage: 20 DROPLETS WHEN NEEDED
     Route: 048
     Dates: start: 20100601, end: 20100701
  9. FOLSAN [Concomitant]
     Route: 048
     Dates: start: 20070401
  10. MAGNESIUM [Concomitant]
  11. AMITRIPTYLINE HCL [Concomitant]
     Route: 048
     Dates: start: 20101001
  12. LANTAREL [Concomitant]
     Indication: RHEUMATOID ARTHRITIS
     Route: 058
     Dates: start: 20070401
  13. MACROGOL [Concomitant]
     Dosage: ONCE DAILY
     Route: 048
     Dates: start: 20100601

REACTIONS (3)
  - CONDITION AGGRAVATED [None]
  - DRUG INEFFECTIVE [None]
  - RHEUMATOID ARTHRITIS [None]
